FAERS Safety Report 9213787 (Version 1)
Quarter: 2013Q2

REPORT INFORMATION
  Report Type: Spontaneous
  Country: US (occurrence: US)
  Receive Date: 20130405
  Receipt Date: 20130405
  Transmission Date: 20140414
  Serious: Yes (Other)
  Sender: FDA-Public Use
  Company Number: US-PFIZER INC-2013102965

PATIENT
  Age: 50 Year
  Sex: Male
  Weight: 85.26 kg

DRUGS (9)
  1. TIKOSYN [Suspect]
     Indication: ARRHYTHMIA
     Dosage: 0.5 MG, 2X/DAY
     Dates: start: 201206
  2. NITROSTAT [Concomitant]
     Indication: CHEST PAIN
     Dosage: 0.4 MG, UNK
  3. ASPIRIN [Concomitant]
     Dosage: 81 MG, DAILY
  4. PRAVASTATIN [Concomitant]
     Indication: BLOOD CHOLESTEROL INCREASED
     Dosage: 20 MG, DAILY
  5. WARFARIN [Concomitant]
     Dosage: 5MG DAILY FOR 5 DAYS AND 2.5MG FOR 2 DAYS IN A WEEK
  6. RANITIDINE [Concomitant]
     Indication: GASTRIC DISORDER
     Dosage: 150 MG, 2X/DAY
  7. XOPENEX [Concomitant]
     Indication: CHRONIC OBSTRUCTIVE PULMONARY DISEASE
     Dosage: UNK
  8. FISH OIL [Concomitant]
     Dosage: UNK
  9. MULTIVITAMINS [Concomitant]

REACTIONS (4)
  - Heart rate decreased [Unknown]
  - Insomnia [Unknown]
  - Weight increased [Unknown]
  - Thirst [Unknown]
